FAERS Safety Report 5959669-2 (Version None)
Quarter: 2008Q4

REPORT INFORMATION
  Report Type: 
  Country: None (occurrence: None)
  Receive Date: 20081120
  Receipt Date: 20081105
  Transmission Date: 20090506
  Serious: Yes (Hospitalization)
  Sender: FDA-Public Use
  Company Number: FR-ELI_LILLY_AND_COMPANY-FR200807003330

PATIENT
  Age: 78 Year
  Sex: Female
  Weight: 79 kg

DRUGS (8)
  1. FORTEO [Suspect]
     Indication: OSTEOPOROSIS
     Dosage: 20 UG, DAILY (1/D)
     Route: 058
     Dates: start: 20071009, end: 20080711
  2. FORTEO [Suspect]
     Dosage: 20 UG, DAILY (1/D)
     Route: 058
     Dates: start: 20080701
  3. PLAVIX [Concomitant]
     Dosage: UNK, UNKNOWN
     Route: 048
  4. ASPEGIC 325 [Concomitant]
     Dosage: 75 MG, DAILY (1/D)
     Route: 048
  5. TENORMIN [Concomitant]
     Dosage: UNK, UNKNOWN
     Route: 048
  6. TAHOR [Concomitant]
     Dosage: 10 MG, DAILY (1/D)
     Route: 048
  7. TRIATEC [Concomitant]
     Dosage: 20 MG, DAILY (1/D)
     Route: 048
  8. MOPRAL [Concomitant]
     Dosage: UNK, UNKNOWN
     Route: 065

REACTIONS (1)
  - CAROTID ARTERY STENOSIS [None]
